FAERS Safety Report 15217004 (Version 1)
Quarter: 2018Q3

REPORT INFORMATION
  Report Type: Spontaneous
  Country: US (occurrence: US)
  Receive Date: 20180730
  Receipt Date: 20180730
  Transmission Date: 20181010
  Serious: Yes (Other)
  Sender: FDA-Public Use
  Company Number: US-CELGENEUS-USA-20180604267

PATIENT
  Sex: Male

DRUGS (2)
  1. REVLIMID [Suspect]
     Active Substance: LENALIDOMIDE
     Indication: OFF LABEL USE
     Dosage: 15 MILLIGRAM
     Route: 048
     Dates: start: 20180627
  2. REVLIMID [Suspect]
     Active Substance: LENALIDOMIDE
     Indication: MYCOSIS FUNGOIDES
     Dosage: 20 MILLIGRAM
     Route: 048
     Dates: start: 20180523, end: 20180613

REACTIONS (1)
  - Tumour flare [Recovering/Resolving]

NARRATIVE: CASE EVENT DATE: 2018
